FAERS Safety Report 5884346-6 (Version None)
Quarter: 2008Q3

REPORT INFORMATION
  Report Type: 
  Country: None (occurrence: None)
  Receive Date: 20080915
  Receipt Date: 20080903
  Transmission Date: 20090109
  Serious: Yes (Hospitalization)
  Sender: FDA-Public Use
  Company Number: DE-PFIZER INC-2008074525

PATIENT
  Sex: Male
  Weight: 82.1 kg

DRUGS (5)
  1. MARAVIROC [Suspect]
     Indication: HIV INFECTION
     Route: 048
     Dates: start: 20080408
  2. ETRAVIRINE [Suspect]
     Indication: HIV INFECTION
     Route: 048
     Dates: start: 20080408, end: 20080603
  3. ETRAVIRINE [Suspect]
     Route: 048
     Dates: start: 20080605
  4. PREZISTA [Suspect]
     Indication: HIV INFECTION
     Route: 048
     Dates: start: 20080408
  5. RITONAVIR [Concomitant]
     Route: 048
     Dates: start: 20080408

REACTIONS (1)
  - MYOCARDIAL INFARCTION [None]
